FAERS Safety Report 16190961 (Version 2)
Quarter: 2019Q2

REPORT INFORMATION
  Report Type: Spontaneous
  Country: JP (occurrence: JP)
  Receive Date: 20190412
  Receipt Date: 20190506
  Transmission Date: 20190711
  Serious: Yes (Hospitalization)
  Sender: FDA-Public Use
  Company Number: JP-SA-2019SA097463

PATIENT
  Age: 56 Year
  Sex: Male

DRUGS (1)
  1. XYZAL [Suspect]
     Active Substance: LEVOCETIRIZINE DIHYDROCHLORIDE
     Indication: PRODUCT USED FOR UNKNOWN INDICATION
     Dosage: UNK
     Route: 048

REACTIONS (5)
  - Haemorrhoids [Unknown]
  - Ill-defined disorder [Unknown]
  - Anal fistula [Unknown]
  - Off label use [Unknown]
  - Intentional product misuse [Unknown]
